FAERS Safety Report 9296179 (Version 1)
Quarter: 2013Q2

REPORT INFORMATION
  Report Type: Spontaneous
  Country: US (occurrence: US)
  Receive Date: 20130517
  Receipt Date: 20130517
  Transmission Date: 20140414
  Serious: Yes (Other)
  Sender: FDA-Public Use
  Company Number: US-ABBOTT-13P-163-1088449-00

PATIENT
  Age: 29 Year
  Sex: Male

DRUGS (5)
  1. MARINOL [Suspect]
     Indication: NAUSEA
     Dates: end: 201303
  2. MARINOL [Suspect]
     Indication: ABDOMINAL PAIN
  3. MARINOL [Suspect]
     Indication: CROHN^S DISEASE
  4. MARINOL [Suspect]
     Indication: CROHN^S DISEASE
  5. UNKNOWN PAIN MEDICATION [Concomitant]
     Indication: PAIN

REACTIONS (6)
  - Fall [Recovered/Resolved]
  - Meniscus injury [Unknown]
  - Spinal fracture [Recovered/Resolved]
  - Appendicectomy [Recovered/Resolved]
  - Crohn^s disease [Unknown]
  - Off label use [Unknown]
